FAERS Safety Report 9704655 (Version 1)
Quarter: 2013Q4

REPORT INFORMATION
  Report Type: Report from Study
  Country: US (occurrence: US)
  Receive Date: 20131122
  Receipt Date: 20131122
  Transmission Date: 20140711
  Serious: No
  Sender: FDA-Public Use
  Company Number: US-ASTRAZENECA-2013SE83118

PATIENT
  Age: 58 Year
  Sex: Female
  Weight: 74.8 kg

DRUGS (3)
  1. NEXIUM [Suspect]
     Indication: GASTROOESOPHAGEAL REFLUX DISEASE
     Route: 048
     Dates: start: 2006
  2. TWYNSTA [Concomitant]
     Indication: BLOOD PRESSURE ABNORMAL
     Dosage: 80/5MG DAILY
     Route: 048
     Dates: start: 2011
  3. LEXAPRO [Concomitant]
     Indication: ANXIETY
     Route: 048
     Dates: start: 201305

REACTIONS (4)
  - Activities of daily living impaired [Unknown]
  - Chest discomfort [Unknown]
  - Eye disorder [Unknown]
  - Intentional drug misuse [Not Recovered/Not Resolved]
